FAERS Safety Report 9008542 (Version 1)
Quarter: 2013Q1

REPORT INFORMATION
  Report Type: Report from Study
  Country: JP (occurrence: JP)
  Receive Date: 20130111
  Receipt Date: 20130111
  Transmission Date: 20140127
  Serious: Yes (Death)
  Sender: FDA-Public Use
  Company Number: JP-AMGEN-JPNCT2013001478

PATIENT
  Age: 86 Year
  Sex: Male
  Weight: 52 kg

DRUGS (9)
  1. DARBEPOETIN ALFA [Suspect]
     Indication: NEPHROGENIC ANAEMIA
     Dosage: 60 MUG, Q3WK
     Route: 058
     Dates: start: 20110428, end: 20110609
  2. DARBEPOETIN ALFA [Suspect]
     Dosage: 60 MUG, Q4WK
     Route: 058
     Dates: start: 20110811, end: 20110908
  3. DARBEPOETIN ALFA [Suspect]
     Dosage: 120 MUG, QD
     Route: 058
     Dates: start: 20111122, end: 20111122
  4. DARBEPOETIN ALFA [Suspect]
     Dosage: 120 MUG, QD
     Route: 058
     Dates: start: 20111208, end: 20111208
  5. DARBEPOETIN ALFA [Suspect]
     Dosage: 120 MUG, QD
     Route: 058
     Dates: start: 20120210, end: 20120210
  6. ATELEC [Concomitant]
     Dosage: UNK
     Route: 048
  7. BLOPRESS [Concomitant]
     Dosage: UNK
     Route: 048
  8. RASILEZ [Concomitant]
     Dosage: UNK
     Route: 048
  9. BUFFERIN [Concomitant]
     Dosage: UNK
     Route: 048

REACTIONS (1)
  - Sudden death [Fatal]
